FAERS Safety Report 5236085-2 (Version None)
Quarter: 2007Q1

REPORT INFORMATION
  Report Type: 
  Country: None (occurrence: None)
  Receive Date: 20070212
  Receipt Date: 20070202
  Transmission Date: 20070707
  Serious: Yes (Other)
  Sender: FDA-Public Use
  Company Number: GB-ROCHE-481805

PATIENT
  Age: 51 Year
  Sex: Female
  Weight: 87 kg

DRUGS (1)
  1. XENICAL [Suspect]
     Indication: OBESITY
     Route: 048
     Dates: start: 20061030, end: 20061230

REACTIONS (2)
  - CONDITION AGGRAVATED [None]
  - GASTRIC ULCER [None]
